FAERS Safety Report 6421886-5 (Version None)
Quarter: 2009Q4

REPORT INFORMATION
  Report Type: 
  Country: None (occurrence: None)
  Receive Date: 20091030
  Receipt Date: 20091023
  Transmission Date: 20100525
  Serious: Yes (Other)
  Sender: FDA-Public Use
  Company Number: US-AMGEN-QUU368126

PATIENT
  Sex: Female
  Weight: 89.9 kg

DRUGS (2)
  1. ENBREL [Suspect]
     Indication: RHEUMATOID ARTHRITIS
     Route: 058
     Dates: start: 20050817
  2. METHOTREXATE [Concomitant]
     Route: 048

REACTIONS (2)
  - CONVULSION [None]
  - CORONARY ARTERY OCCLUSION [None]
